FAERS Safety Report 17147378 (Version 1)
Quarter: 2019Q4

REPORT INFORMATION
  Report Type: Report from Study
  Country: CO (occurrence: CO)
  Receive Date: 20191212
  Receipt Date: 20191212
  Transmission Date: 20200122
  Serious: Yes (Hospitalization)
  Sender: FDA-Public Use
  Company Number: CO-ASTELLAS-2019US023537

PATIENT
  Age: 28 Year
  Sex: Female
  Weight: 45 kg

DRUGS (6)
  1. PREDNISOLONE. [Concomitant]
     Active Substance: PREDNISOLONE
     Indication: PRODUCT USED FOR UNKNOWN INDICATION
     Route: 048
     Dates: start: 20190410
  2. TACROLIMUS. [Suspect]
     Active Substance: TACROLIMUS
     Dosage: 14 MG (2 CAPSULES OF 5 MG AND 4 CAPSULES OF 1 MG) ONCE DAILY
     Route: 048
     Dates: start: 20190411, end: 20191103
  3. OMEPRAZOLE. [Concomitant]
     Active Substance: OMEPRAZOLE
     Indication: GASTRITIS
     Route: 048
     Dates: start: 20190410
  4. TACROLIMUS. [Suspect]
     Active Substance: TACROLIMUS
     Dosage: 9 MG, ONCE DAILY (1 CAPSULES OF 5 MG AND 4 CAPSULES OF 1 MG)
     Route: 048
     Dates: start: 20191104
  5. CELLCEPT [Concomitant]
     Active Substance: MYCOPHENOLATE MOFETIL\MYCOPHENOLATE MOFETIL HYDROCHLORIDE
     Indication: IMMUNOSUPPRESSANT DRUG LEVEL
     Route: 048
     Dates: start: 20190410
  6. TACROLIMUS. [Suspect]
     Active Substance: TACROLIMUS
     Indication: RENAL TRANSPLANT
     Dosage: 8 MG, ONCE DAILY (1 CAPSULES OF 5 MG AND 3 CAPSULES OF 1 MG)
     Route: 048
     Dates: start: 20190410

REACTIONS (5)
  - Pain [Recovered/Resolved]
  - Urinary tract infection [Recovering/Resolving]
  - Vesicoureteric reflux [Recovering/Resolving]
  - Vomiting [Recovered/Resolved]
  - Ear infection [Recovered/Resolved]

NARRATIVE: CASE EVENT DATE: 20190526
